FAERS Safety Report 23175926 (Version 2)
Quarter: 2023Q4

REPORT INFORMATION
  Report Type: Spontaneous
  Country: US (occurrence: US)
  Receive Date: 20231113
  Receipt Date: 20231113
  Transmission Date: 20240110
  Serious: Yes (Death, Hospitalization)
  Sender: FDA-Public Use
  Company Number: US-JNJFOC-20231104973

PATIENT
  Age: 13 Year
  Sex: Male

DRUGS (1)
  1. TYLENOL [Suspect]
     Active Substance: ACETAMINOPHEN
     Indication: Pyrexia
     Route: 065
     Dates: start: 2010

REACTIONS (4)
  - Death [Fatal]
  - Seizure [Unknown]
  - Coma [Unknown]
  - Gait inability [Unknown]

NARRATIVE: CASE EVENT DATE: 20100101
